FAERS Safety Report 5679867-5 (Version None)
Quarter: 2008Q1

REPORT INFORMATION
  Report Type: 
  Country: None (occurrence: None)
  Receive Date: 20080324
  Receipt Date: 20080307
  Transmission Date: 20080703
  Serious: Yes (Life-Threatening)
  Sender: FDA-Public Use
  Company Number: S08-CAN-00986-01

PATIENT

DRUGS (3)
  1. CERVIDIL [Suspect]
     Dosage: 10 MG ONCE TRANSPLACENTAL
     Route: 064
     Dates: start: 20080205, end: 20080206
  2. DEMEROL [Concomitant]
  3. GRAVOL (DIMENHYDRINATE0 [Concomitant]

REACTIONS (4)
  - CAESAREAN SECTION [None]
  - DRUG EXPOSURE DURING PREGNANCY [None]
  - FOETAL HEART RATE DECELERATION [None]
  - UMBILICAL CORD AROUND NECK [None]
